FAERS Safety Report 12559047 (Version 1)
Quarter: 2016Q3

REPORT INFORMATION
  Report Type: Spontaneous
  Country: US (occurrence: US)
  Receive Date: 20160715
  Receipt Date: 20160715
  Transmission Date: 20161109
  Serious: No
  Sender: FDA-Public Use
  Company Number: US-TEVA-660135USA

PATIENT
  Age: 44 Year
  Sex: Male

DRUGS (1)
  1. ZECUITY [Suspect]
     Active Substance: SUMATRIPTAN SUCCINATE
     Dosage: 6.5 MG OVER 4 HOURS
     Route: 062
     Dates: start: 201605

REACTIONS (10)
  - Application site erythema [Unknown]
  - Paraesthesia [Unknown]
  - Application site warmth [Recovered/Resolved]
  - Skin disorder [Not Recovered/Not Resolved]
  - Product adhesion issue [Unknown]
  - Application site pain [Recovered/Resolved]
  - Application site pruritus [Recovered/Resolved]
  - Application site pain [Unknown]
  - Device battery issue [Unknown]
  - Device leakage [Not Recovered/Not Resolved]

NARRATIVE: CASE EVENT DATE: 201605
